FAERS Safety Report 8121296-9 (Version None)
Quarter: 2012Q1

REPORT INFORMATION
  Report Type: 
  Country: None (occurrence: None)
  Receive Date: 20120206
  Receipt Date: 20120127
  Transmission Date: 20120608
  Serious: Yes (Other)
  Sender: FDA-Public Use
  Company Number: AUR-APL-2012-00704

PATIENT
  Sex: Female

DRUGS (4)
  1. FISH OIL (FISH OIL) [Concomitant]
  2. VITAMINS (KAPSOVIT) [Concomitant]
  3. LOSARTAN POTASSIUM AND HYDROCHLOROTHIAZIDE [Suspect]
     Indication: HYPERTENSION
     Dosage: (1 DOSAGE FORMS, 1 D), ORAL
     Route: 048
     Dates: start: 20111101
  4. CALCIUM CARBONATE [Concomitant]

REACTIONS (5)
  - BLOOD PRESSURE INADEQUATELY CONTROLLED [None]
  - PRODUCT QUALITY ISSUE [None]
  - DRUG INEFFECTIVE [None]
  - ABNORMAL SENSATION IN EYE [None]
  - BLOOD PRESSURE SYSTOLIC INCREASED [None]
